FAERS Safety Report 6819507-2 (Version None)
Quarter: 2010Q3

REPORT INFORMATION
  Report Type: 
  Country: None (occurrence: None)
  Receive Date: 20100707
  Receipt Date: 20100624
  Transmission Date: 20110219
  Serious: Yes (Other)
  Sender: FDA-Public Use
  Company Number: PHHY2010AU33769

PATIENT
  Sex: Male
  Weight: 92 kg

DRUGS (3)
  1. CLOZARIL [Suspect]
     Indication: SCHIZOPHRENIA
     Dosage: 750 MG/DAY
     Dates: start: 19990420, end: 20100623
  2. VALIUM [Concomitant]
     Dosage: 5 MG
  3. CITALOPRAM HYDROBROMIDE [Concomitant]
     Dosage: 40 MG

REACTIONS (8)
  - BLOOD CREATININE DECREASED [None]
  - CARDIAC VENTRICULAR DISORDER [None]
  - CARDIOMYOPATHY [None]
  - ECHOCARDIOGRAM ABNORMAL [None]
  - EJECTION FRACTION DECREASED [None]
  - HALLUCINATION, AUDITORY [None]
  - MEAN CELL HAEMOGLOBIN DECREASED [None]
  - VENTRICULAR HYPOKINESIA [None]
